FAERS Safety Report 4903544-9 (Version None)
Quarter: 2006Q1

REPORT INFORMATION
  Report Type: 
  Country: None (occurrence: None)
  Receive Date: 20060208
  Receipt Date: 20060127
  Transmission Date: 20060701
  Serious: Yes (Death)
  Sender: FDA-Public Use
  Company Number: DE-JNJFOC-20060200018

PATIENT
  Sex: Male
  Weight: 75 kg

DRUGS (4)
  1. RISPERDAL [Suspect]
     Route: 048
     Dates: start: 20060120, end: 20060123
  2. RAMIPRIL [Suspect]
     Indication: DRUG USE FOR UNKNOWN INDICATION
     Route: 048
  3. BELOC ZOK MITE [Suspect]
     Indication: DRUG USE FOR UNKNOWN INDICATION
     Route: 048
  4. ZANTAC [Suspect]
     Indication: DRUG USE FOR UNKNOWN INDICATION
     Route: 048

REACTIONS (4)
  - ANAEMIA [None]
  - CARDIAC FAILURE ACUTE [None]
  - LIVER FUNCTION TEST ABNORMAL [None]
  - PROTEIN TOTAL DECREASED [None]
